FAERS Safety Report 6998110-8 (Version None)
Quarter: 2010Q3

REPORT INFORMATION
  Report Type: 
  Country: None (occurrence: None)
  Receive Date: 20100920
  Receipt Date: 20090928
  Transmission Date: 20110219
  Serious: No
  Sender: FDA-Public Use
  Company Number: US-ASTRAZENECA-2009UW11456

PATIENT
  Age: 51 Year
  Sex: Female
  Weight: 90.7 kg

DRUGS (4)
  1. SEROQUEL [Suspect]
     Indication: DEPRESSION
     Route: 048
     Dates: start: 20041006, end: 20070101
  2. MIRTAZAPINE [Concomitant]
     Dosage: 30-45 MG
     Dates: start: 20040101, end: 20050101
  3. AMITRIPTYLINE HCL [Concomitant]
     Dosage: 25-50 MG
     Dates: start: 20060101, end: 20070101
  4. PROZAC [Concomitant]
     Dates: start: 19980101

REACTIONS (2)
  - OBESITY [None]
  - TYPE 2 DIABETES MELLITUS [None]
